FAERS Safety Report 25396750 (Version 2)
Quarter: 2025Q2

REPORT INFORMATION
  Report Type: Report from Study
  Country: CA (occurrence: CA)
  Receive Date: 20250604
  Receipt Date: 20250606
  Transmission Date: 20250716
  Serious: Yes (Other)
  Sender: JOHNSON AND JOHNSON
  Company Number: CA-JNJFOC-20250602103

PATIENT
  Age: 37 Year
  Sex: Female

DRUGS (4)
  1. REMICADE [Suspect]
     Active Substance: INFLIXIMAB
     Indication: Crohn^s disease
     Route: 041
     Dates: start: 20241112
  2. REMICADE [Suspect]
     Active Substance: INFLIXIMAB
     Route: 041
  3. ACRIVASTINE [Concomitant]
     Active Substance: ACRIVASTINE
     Indication: Product used for unknown indication
     Route: 042
  4. HYDROCORTISONE [Concomitant]
     Active Substance: HYDROCORTISONE
     Indication: Product used for unknown indication
     Route: 042

REACTIONS (2)
  - Intestinal resection [Unknown]
  - Crohn^s disease [Unknown]

NARRATIVE: CASE EVENT DATE: 20250501
